FAERS Safety Report 5138662-6 (Version None)
Quarter: 2006Q4

REPORT INFORMATION
  Report Type: 
  Country: None (occurrence: None)
  Receive Date: 20061026
  Receipt Date: 20061026
  Transmission Date: 20070319
  Serious: No
  Sender: FDA-Public Use
  Company Number: None

PATIENT
  Sex: Female
  Weight: 155.8 kg

DRUGS (1)
  1. GLEEVEC [Suspect]
     Indication: CHRONIC MYELOID LEUKAEMIA
     Dosage: 400MG DAILY PO
     Route: 048
     Dates: start: 20040501, end: 20061025

REACTIONS (2)
  - BLOOD CALCIUM INCREASED [None]
  - CALCINOSIS [None]
